FAERS Safety Report 4262984-4 (Version None)
Quarter: 2004Q1

REPORT INFORMATION
  Report Type: 
  Country: None (occurrence: None)
  Receive Date: 20040102
  Receipt Date: 20040102
  Transmission Date: 20041129
  Serious: Yes (Death)
  Sender: FDA-Public Use
  Company Number: None

PATIENT
  Age: 22 Month
  Sex: Female
  Weight: 10.2 kg

DRUGS (1)
  1. IRINOTECAN -COG#9761 [Suspect]
     Dosage: COG#9761
     Dates: start: 20031120, end: 20031215

REACTIONS (6)
  - APNOEA [None]
  - COMA [None]
  - DIARRHOEA [None]
  - DISEASE PROGRESSION [None]
  - PUPIL FIXED [None]
  - VOMITING [None]
